FAERS Safety Report 6509976-X (Version None)
Quarter: 2009Q4

REPORT INFORMATION
  Report Type: 
  Country: None (occurrence: None)
  Receive Date: 20091222
  Receipt Date: 20091214
  Transmission Date: 20100525
  Serious: Yes (Hospitalization)
  Sender: FDA-Public Use
  Company Number: JP-NOVOPROD-302146

PATIENT
  Age: 10 Year
  Sex: Male
  Weight: 51 kg

DRUGS (4)
  1. NORDITROPIN NORDIFLEX [Suspect]
     Indication: GROWTH HORMONE DEFICIENCY
     Dosage: XX- 5.6 MG, QD
     Route: 058
     Dates: start: 20061108, end: 20090902
  2. CORTRIL                            /00028601/ [Concomitant]
     Dosage: 15 - 20 MG, UNK
     Route: 048
     Dates: start: 20020101
  3. THYRADIN S [Concomitant]
     Dosage: 60 UG, QD
     Route: 048
     Dates: start: 20020712
  4. DESMOPRESSIN [Concomitant]
     Dosage: 1.25-2.50 UG, QD
     Route: 045
     Dates: start: 20020101

REACTIONS (1)
  - CRANIOPHARYNGIOMA [None]
